FAERS Safety Report 4563100-1 (Version None)
Quarter: 2005Q1

REPORT INFORMATION
  Report Type: 
  Country: None (occurrence: None)
  Receive Date: 20050125
  Receipt Date: 20050111
  Transmission Date: 20050727
  Serious: Yes (Death)
  Sender: FDA-Public Use
  Company Number: 05H-062-0286548-00

PATIENT
  Age: 70 Year
  Sex: Female

DRUGS (2)
  1. HEPARIN SODIUM [Suspect]
     Indication: ANTICOAGULANT THERAPY
     Dosage: 80 IU/KG, BOLUS,DAY I
  2. HEPARIN SODIUM [Suspect]
     Indication: ANTICOAGULANT THERAPY
     Dosage: 18 IU/KG, H, INTRAVENOUS, DAY 1
     Route: 042

REACTIONS (1)
  - HAEMORRHAGE INTRACRANIAL [None]
